APPROVED DRUG PRODUCT: NORCET
Active Ingredient: ACETAMINOPHEN; HYDROCODONE BITARTRATE
Strength: 500MG;5MG
Dosage Form/Route: TABLET;ORAL
Application: A088871 | Product #001
Applicant: ABANA PHARMACEUTICALS INC
Approved: May 15, 1986 | RLD: No | RS: No | Type: DISCN